FAERS Safety Report 19958235 (Version 1)
Quarter: 2021Q4

REPORT INFORMATION
  Report Type: Spontaneous
  Country: US (occurrence: US)
  Receive Date: 20211015
  Receipt Date: 20211015
  Transmission Date: 20220303
  Serious: No
  Sender: FDA-Public Use
  Company Number: US-SUNOVION-2021SUN003876

PATIENT
  Age: 50 Year
  Sex: Female

DRUGS (1)
  1. LATUDA [Suspect]
     Active Substance: LURASIDONE HYDROCHLORIDE
     Indication: Bipolar disorder
     Dosage: UNK
     Route: 048

REACTIONS (8)
  - Personality change [Unknown]
  - Aggression [Unknown]
  - Anger [Unknown]
  - Mood altered [Unknown]
  - Abnormal behaviour [Unknown]
  - Thinking abnormal [Unknown]
  - Irritability [Unknown]
  - Feeling abnormal [Unknown]
